FAERS Safety Report 18409392 (Version 6)
Quarter: 2022Q2

REPORT INFORMATION
  Report Type: Report from Study
  Country: US (occurrence: US)
  Receive Date: 20201021
  Receipt Date: 20220413
  Transmission Date: 20220721
  Serious: Yes (Other)
  Sender: FDA-Public Use
  Company Number: None

PATIENT
  Sex: Female

DRUGS (2)
  1. ILARIS [Suspect]
     Active Substance: CANAKINUMAB
     Indication: Juvenile idiopathic arthritis
     Dosage: 50 MG, EVERY 28 DAYS
     Route: 058
  2. ILARIS [Suspect]
     Active Substance: CANAKINUMAB
     Dosage: 50 MG, QMO
     Route: 058
     Dates: start: 20191202

REACTIONS (5)
  - Eye injury [Unknown]
  - Accident [Unknown]
  - COVID-19 [Unknown]
  - Illness [Unknown]
  - Inappropriate schedule of product administration [Unknown]
